FAERS Safety Report 23986835 (Version 8)
Quarter: 2024Q4

REPORT INFORMATION
  Report Type: Spontaneous
  Country: US (occurrence: US)
  Receive Date: 20240618
  Receipt Date: 20241227
  Transmission Date: 20250114
  Serious: Yes (Other)
  Sender: PFIZER
  Company Number: US-PFIZER INC-202400186243

PATIENT
  Age: 42 Year
  Sex: Female

DRUGS (2)
  1. VELSIPITY [Suspect]
     Active Substance: ETRASIMOD ARGININE
     Indication: Inflammatory bowel disease
     Dosage: 2 MG, DAILY
     Route: 048
  2. VELSIPITY [Suspect]
     Active Substance: ETRASIMOD ARGININE
     Indication: Colitis microscopic

REACTIONS (7)
  - Nephrolithiasis [Unknown]
  - Contrast media allergy [Unknown]
  - Dizziness [Unknown]
  - Headache [Unknown]
  - Renal pain [Unknown]
  - Constipation [Not Recovered/Not Resolved]
  - Off label use [Unknown]
